FAERS Safety Report 6909386-7 (Version None)
Quarter: 2010Q3

REPORT INFORMATION
  Report Type: 
  Country: None (occurrence: None)
  Receive Date: 20100805
  Receipt Date: 20100804
  Transmission Date: 20110219
  Serious: Yes (Death)
  Sender: FDA-Public Use
  Company Number: US-CEPHALON-2009009131

PATIENT
  Age: 20 Year
  Sex: Male

DRUGS (1)
  1. ACTIQ [Suspect]
     Route: 002

REACTIONS (2)
  - ACCIDENTAL OVERDOSE [None]
  - DRUG ABUSE [None]
